FAERS Safety Report 7998152-X (Version None)
Quarter: 2011Q4

REPORT INFORMATION
  Report Type: 
  Country: None (occurrence: None)
  Receive Date: 20111221
  Receipt Date: 20110306
  Transmission Date: 20120403
  Serious: No
  Sender: FDA-Public Use
  Company Number: US-GLAXOSMITHKLINE-A0917673A

PATIENT
  Sex: Male

DRUGS (2)
  1. LOVAZA [Suspect]
     Indication: BLOOD TRIGLYCERIDES INCREASED
     Dosage: 1G PER DAY
     Dates: start: 20050101
  2. ASPIRIN [Concomitant]
     Dosage: 1TAB PER DAY

REACTIONS (2)
  - BLOOD TRIGLYCERIDES DECREASED [None]
  - DRUG ADMINISTRATION ERROR [None]
